FAERS Safety Report 7478977-X (Version None)
Quarter: 2011Q2

REPORT INFORMATION
  Report Type: 
  Country: None (occurrence: None)
  Receive Date: 20110513
  Receipt Date: 20110131
  Transmission Date: 20111010
  Serious: Yes (Other)
  Sender: FDA-Public Use
  Company Number: PHHY2011FR08135

PATIENT
  Sex: Male

DRUGS (3)
  1. DILTIAZEM [Interacting]
     Indication: HYPERTROPHIC CARDIOMYOPATHY
     Dosage: 200 MG, UNK
     Dates: start: 20101101
  2. ATORVASTATIN CALCIUM [Interacting]
     Indication: HYPERTROPHIC CARDIOMYOPATHY
     Dosage: 10 MG, UNK
     Dates: start: 20101101, end: 20110201
  3. GLEEVEC [Suspect]
     Indication: CHRONIC MYELOID LEUKAEMIA
     Dosage: 400 MG, QD
     Route: 048
     Dates: start: 20090401

REACTIONS (9)
  - LEFT VENTRICULAR DYSFUNCTION [None]
  - LYMPHOCYTE COUNT INCREASED [None]
  - BLOOD LACTATE DEHYDROGENASE INCREASED [None]
  - DRUG LEVEL DECREASED [None]
  - DRUG INTERACTION [None]
  - DYSPNOEA EXERTIONAL [None]
  - HYPERTROPHIC CARDIOMYOPATHY [None]
  - HAEMOGLOBIN DECREASED [None]
  - PERIORBITAL OEDEMA [None]
